FAERS Safety Report 8900829 (Version 1)
Quarter: 2012Q4

REPORT INFORMATION
  Report Type: 
  Country: CA (occurrence: CA)
  Receive Date: 20121109
  Receipt Date: 20121109
  Transmission Date: 20130627
  Serious: Yes (Hospitalization)
  Sender: FDA-Public Use
  Company Number: PHMT2006CA01939

PATIENT
  Sex: Female

DRUGS (5)
  1. SANDOSTATIN LAR [Suspect]
     Indication: PANCREATIC CARCINOMA
     Dosage: 30 mg, QW3
     Dates: start: 20060626, end: 20060908
  2. SANDOSTATIN LAR [Suspect]
     Dates: start: 20061220
  3. CALCIUM [Concomitant]
  4. DEMEROL [Concomitant]
  5. TYLENOL W/CODEINE NO. 3 [Concomitant]

REACTIONS (7)
  - Pain [Unknown]
  - Malaise [Unknown]
  - Nausea [Unknown]
  - Injection site reaction [Unknown]
  - Abdominal pain upper [Unknown]
  - Vomiting [Unknown]
  - Headache [Unknown]
